FAERS Safety Report 9238567 (Version 1)
Quarter: 2013Q2

REPORT INFORMATION
  Report Type: Spontaneous
  Country: US (occurrence: US)
  Receive Date: 20130418
  Receipt Date: 20130418
  Transmission Date: 20140414
  Serious: Yes (Death)
  Sender: FDA-Public Use
  Company Number: US-PFIZER INC-2013120382

PATIENT
  Age: 64 Year
  Sex: Male

DRUGS (3)
  1. SUTENT [Suspect]
     Indication: RENAL NEOPLASM
     Dosage: 50 MG, UNK
     Route: 048
     Dates: start: 20130222
  2. BETAPACE AF [Concomitant]
     Dosage: UNK
  3. COUMADIN [Concomitant]
     Dosage: UNK

REACTIONS (1)
  - Death [Fatal]
